FAERS Safety Report 7733680-3 (Version None)
Quarter: 2011Q3

REPORT INFORMATION
  Report Type: 
  Country: None (occurrence: None)
  Receive Date: 20110907
  Receipt Date: 20110830
  Transmission Date: 20111222
  Serious: Yes (Other)
  Sender: FDA-Public Use
  Company Number: GB-BRISTOL-MYERS SQUIBB COMPANY-16032666

PATIENT
  Sex: Female

DRUGS (1)
  1. GLUCOPHAGE POWDER [Suspect]
     Dosage: ALSO:850MG/3 PER DAY

REACTIONS (2)
  - OESOPHAGEAL CARCINOMA [None]
  - DIABETES MELLITUS INADEQUATE CONTROL [None]
